FAERS Safety Report 21964545 (Version 1)
Quarter: 2023Q1

REPORT INFORMATION
  Report Type: Spontaneous
  Country: US (occurrence: None)
  Receive Date: 20230207
  Receipt Date: 20230207
  Transmission Date: 20230417
  Serious: No
  Sender: FDA-Public Use
  Company Number: None

PATIENT
  Sex: Female

DRUGS (1)
  1. COSENTYX [Suspect]
     Active Substance: SECUKINUMAB
     Route: 058

REACTIONS (7)
  - Arthralgia [None]
  - Pain [None]
  - Fatigue [None]
  - Pruritus [None]
  - Inappropriate schedule of product administration [None]
  - Product distribution issue [None]
  - Economic problem [None]
